FAERS Safety Report 7315912-9 (Version None)
Quarter: 2011Q1

REPORT INFORMATION
  Report Type: 
  Country: None (occurrence: None)
  Receive Date: 20110225
  Receipt Date: 20110218
  Transmission Date: 20110831
  Serious: Yes (Death)
  Sender: FDA-Public Use
  Company Number: US-GENZYME-CLOF-1001417

PATIENT
  Sex: Male
  Weight: 52.3 kg

DRUGS (8)
  1. AZITHROMYCIN [Concomitant]
     Indication: PRODUCT USED FOR UNKNOWN INDICATION
     Dosage: 500 MG, ONCE
     Route: 065
     Dates: start: 20110101, end: 20110101
  2. BACTRIM [Concomitant]
     Indication: ANTIFUNGAL PROPHYLAXIS
     Dosage: UNK
     Route: 065
  3. LOVENOX [Concomitant]
     Indication: PRODUCT USED FOR UNKNOWN INDICATION
     Dosage: THERAPEUTIC DOSING
     Route: 065
     Dates: start: 20101206, end: 20110101
  4. ZOSYN [Concomitant]
     Indication: PRODUCT USED FOR UNKNOWN INDICATION
     Dosage: UNK
     Route: 065
     Dates: start: 20110118
  5. AZITHROMYCIN [Concomitant]
     Dosage: 250 MG, QDX4
     Dates: start: 20110101, end: 20110123
  6. CLOLAR [Suspect]
     Indication: ACUTE MYELOID LEUKAEMIA
     Dosage: 52 MG/M2, QD
     Route: 042
     Dates: start: 20110120, end: 20110120
  7. CYTARABINE [Suspect]
     Indication: ACUTE MYELOID LEUKAEMIA
     Dosage: 1 G/M2/DOSE
     Route: 065
     Dates: start: 20110120, end: 20110120
  8. VORICONAZOLE [Concomitant]
     Indication: PROPHYLAXIS
     Dosage: UNK
     Route: 065

REACTIONS (8)
  - INFECTION [None]
  - LUNG INFILTRATION [None]
  - INFUSION RELATED REACTION [None]
  - DEEP VEIN THROMBOSIS [None]
  - HYPOTENSION [None]
  - CYTOKINE RELEASE SYNDROME [None]
  - CAPILLARY LEAK SYNDROME [None]
  - RESPIRATORY FAILURE [None]
